FAERS Safety Report 8550059 (Version 3)
Quarter: 2013Q1

REPORT INFORMATION
  Report Type: Spontaneous
  Country: US (occurrence: US)
  Receive Date: 20120507
  Receipt Date: 20130320
  Transmission Date: 20140127
  Serious: Yes (Hospitalization)
  Sender: FDA-Public Use
  Company Number: US-ASTRAZENECA-2012SE23381

PATIENT
  Age: 71 Year
  Sex: Female
  Weight: 72.6 kg

DRUGS (28)
  1. SEROQUEL [Suspect]
     Indication: BIPOLAR DISORDER
     Route: 048
     Dates: start: 2006
  2. SEROQUEL [Suspect]
     Indication: BIPOLAR I DISORDER
     Route: 048
     Dates: start: 2006
  3. SEROQUEL [Suspect]
     Indication: SCHIZOPHRENIA
     Route: 048
     Dates: start: 2006
  4. SEROQUEL [Suspect]
     Indication: BIPOLAR DISORDER
     Route: 048
  5. SEROQUEL [Suspect]
     Indication: BIPOLAR I DISORDER
     Route: 048
  6. SEROQUEL [Suspect]
     Indication: SCHIZOPHRENIA
     Route: 048
  7. SEROQUEL [Suspect]
     Indication: BIPOLAR DISORDER
     Route: 048
  8. SEROQUEL [Suspect]
     Indication: BIPOLAR I DISORDER
     Route: 048
  9. SEROQUEL [Suspect]
     Indication: SCHIZOPHRENIA
     Route: 048
  10. SEROQUEL [Suspect]
     Indication: BIPOLAR DISORDER
     Route: 048
     Dates: start: 2006
  11. SEROQUEL [Suspect]
     Indication: BIPOLAR I DISORDER
     Route: 048
     Dates: start: 2006
  12. SEROQUEL [Suspect]
     Indication: SCHIZOPHRENIA
     Route: 048
     Dates: start: 2006
  13. SEROQUEL [Suspect]
     Indication: BIPOLAR DISORDER
     Dosage: GENERIC
     Route: 048
  14. SEROQUEL [Suspect]
     Indication: BIPOLAR I DISORDER
     Dosage: GENERIC
     Route: 048
  15. SEROQUEL [Suspect]
     Indication: SCHIZOPHRENIA
     Dosage: GENERIC
     Route: 048
  16. SEROQUEL [Suspect]
     Indication: BIPOLAR DISORDER
     Route: 048
  17. SEROQUEL [Suspect]
     Indication: BIPOLAR I DISORDER
     Route: 048
  18. SEROQUEL [Suspect]
     Indication: SCHIZOPHRENIA
     Route: 048
  19. SEROQUEL [Suspect]
     Indication: BIPOLAR DISORDER
     Route: 048
  20. SEROQUEL [Suspect]
     Indication: BIPOLAR I DISORDER
     Route: 048
  21. SEROQUEL [Suspect]
     Indication: SCHIZOPHRENIA
     Route: 048
  22. NEXIUM [Suspect]
     Indication: GASTROOESOPHAGEAL REFLUX DISEASE
     Dosage: DAILY
     Route: 048
  23. RISPERDAL [Suspect]
     Route: 065
  24. ADVAIR [Concomitant]
     Indication: ASTHMA
     Route: 055
  25. SINGULAIR [Concomitant]
     Indication: ASTHMA
  26. JANUMET [Concomitant]
     Indication: DIABETES MELLITUS
     Dosage: TID
  27. KLONOPIN [Concomitant]
     Dosage: OID
  28. CLARINEX [Concomitant]
     Indication: HYPERSENSITIVITY

REACTIONS (7)
  - Drug name confusion [Unknown]
  - Cystitis [Unknown]
  - Depression [Unknown]
  - Gastric disorder [Unknown]
  - Insomnia [Unknown]
  - Drug ineffective [Unknown]
  - Drug dose omission [Unknown]
